FAERS Safety Report 13766112 (Version 1)
Quarter: 2017Q3

REPORT INFORMATION
  Report Type: Report from Study
  Country: CO (occurrence: CO)
  Receive Date: 20170719
  Receipt Date: 20170719
  Transmission Date: 20171127
  Serious: Yes (Death, Hospitalization, Other)
  Sender: FDA-Public Use
  Company Number: CO-ASTELLAS-2017US028248

PATIENT
  Age: 58 Year
  Sex: Male

DRUGS (1)
  1. TACROLIMUS. [Suspect]
     Active Substance: TACROLIMUS
     Indication: RENAL TRANSPLANT
     Dosage: UNK, ONCE DAILY
     Route: 048
     Dates: start: 20170324, end: 20170529

REACTIONS (2)
  - Myocardial infarction [Fatal]
  - Hypertension [Fatal]

NARRATIVE: CASE EVENT DATE: 20170422
